FAERS Safety Report 7703700-0 (Version None)
Quarter: 2011Q3

REPORT INFORMATION
  Report Type: 
  Country: None (occurrence: None)
  Receive Date: 20110823
  Receipt Date: 20110817
  Transmission Date: 20111222
  Serious: Yes (Other)
  Sender: FDA-Public Use
  Company Number: US-PFIZER INC-2011190893

PATIENT

DRUGS (1)
  1. CAMPTOSAR [Suspect]
     Dosage: UNK

REACTIONS (3)
  - CARDIAC FLUTTER [None]
  - PALPITATIONS [None]
  - THROAT TIGHTNESS [None]
